FAERS Safety Report 17980276 (Version 1)
Quarter: 2020Q3

REPORT INFORMATION
  Report Type: Spontaneous
  Country: ES (occurrence: ES)
  Receive Date: 20200703
  Receipt Date: 20200703
  Transmission Date: 20201103
  Serious: Yes (Death)
  Sender: FDA-Public Use
  Company Number: NVSC2020ES185343

PATIENT
  Age: 60 Year
  Sex: Female

DRUGS (2)
  1. PARACETAMOL [Suspect]
     Active Substance: ACETAMINOPHEN
     Indication: SUICIDE ATTEMPT
     Dosage: 7 G, TOTAL (7GR)
     Route: 048
     Dates: start: 20200517, end: 20200517
  2. TIAPRIZAL [Interacting]
     Active Substance: TIAPRIDE HYDROCHLORIDE
     Indication: SUICIDE ATTEMPT
     Dosage: 500 MG, TOTAL (5CPS)
     Route: 048
     Dates: start: 20200517, end: 20200517

REACTIONS (5)
  - Metabolic acidosis [Fatal]
  - Bradycardia [Fatal]
  - Hypotension [Fatal]
  - Acute hepatic failure [Fatal]
  - Depressed level of consciousness [Fatal]

NARRATIVE: CASE EVENT DATE: 20200517
